FAERS Safety Report 8588919-1 (Version None)
Quarter: 2012Q3

REPORT INFORMATION
  Report Type: 
  Country: None (occurrence: None)
  Receive Date: 20120813
  Receipt Date: 20120731
  Transmission Date: 20120928
  Serious: Yes (Other)
  Sender: FDA-Public Use
  Company Number: 2012SP002195

PATIENT
  Age: 51 Year
  Sex: Female
  Weight: 60 kg

DRUGS (2)
  1. OMNARIS [Suspect]
     Indication: RHINITIS
     Route: 045
     Dates: start: 20120704, end: 20120729
  2. OMNARIS [Suspect]
     Indication: SINUSITIS
     Route: 045
     Dates: start: 20120704, end: 20120729

REACTIONS (4)
  - OEDEMA PERIPHERAL [None]
  - MENSTRUAL DISORDER [None]
  - FACE OEDEMA [None]
  - DEFORMITY [None]
